FAERS Safety Report 13521947 (Version 1)
Quarter: 2017Q2

REPORT INFORMATION
  Report Type: Spontaneous
  Country: SI (occurrence: SI)
  Receive Date: 20170508
  Receipt Date: 20170508
  Transmission Date: 20170830
  Serious: Yes (Life-Threatening, Hospitalization, Other)
  Sender: FDA-Public Use
  Company Number: SI-B.I. PHARMACEUTICALS,INC./RIDGEFIELD-2017-BI-025558

PATIENT
  Age: 74 Year
  Sex: Female

DRUGS (1)
  1. PRADAXA [Suspect]
     Active Substance: DABIGATRAN ETEXILATE MESYLATE
     Indication: ATRIAL FIBRILLATION
     Route: 065

REACTIONS (5)
  - Sepsis [Unknown]
  - Renal failure [Recovered/Resolved]
  - Haematoma [Unknown]
  - Peripheral ischaemia [Recovered/Resolved]
  - Gangrene [Recovered/Resolved]
